FAERS Safety Report 17141121 (Version 2)
Quarter: 2020Q1

REPORT INFORMATION
  Report Type: Spontaneous
  Country: US (occurrence: US)
  Receive Date: 20191211
  Receipt Date: 20200121
  Transmission Date: 20200409
  Serious: Yes (Other)
  Sender: FDA-Public Use
  Company Number: US-PFIZER INC-2019529030

PATIENT
  Sex: Male

DRUGS (2)
  1. DEPO-TESTOSTERONE [Suspect]
     Active Substance: TESTOSTERONE CYPIONATE
     Indication: TESTICULAR DISORDER
     Dosage: 2 ML, UNK (200 MG PER ML FOR 10 MILLILITERS IU)
     Route: 030
  2. DEPO-TESTOSTERONE [Suspect]
     Active Substance: TESTOSTERONE CYPIONATE
     Indication: TESTICULAR FAILURE

REACTIONS (1)
  - Blood testosterone increased [Recovered/Resolved]
